FAERS Safety Report 8543409-7 (Version None)
Quarter: 2012Q3

REPORT INFORMATION
  Report Type: 
  Country: None (occurrence: None)
  Receive Date: 20120727
  Receipt Date: 20120716
  Transmission Date: 20120928
  Serious: Yes (Hospitalization)
  Sender: FDA-Public Use
  Company Number: US-BAYER-2012-072265

PATIENT
  Age: 40 Year
  Sex: Female

DRUGS (8)
  1. TYLENOL [Concomitant]
     Indication: PAIN
     Dosage: UNK UNK, PRN
  2. YASMIN [Suspect]
     Indication: DYSMENORRHOEA
  3. PHENERGAN HCL [Concomitant]
     Indication: MIGRAINE
     Route: 054
  4. NORCO [Concomitant]
  5. YASMIN [Suspect]
     Indication: MENORRHAGIA
     Dosage: UNK
     Dates: start: 20061201, end: 20080101
  6. BENADRYL [Concomitant]
     Indication: INSOMNIA
     Dosage: UNK UNK, PRN
  7. IBUPROFEN [Concomitant]
     Indication: PAIN
     Dosage: UNK UNK, PRN
  8. IMITREX [Concomitant]

REACTIONS (1)
  - PULMONARY EMBOLISM [None]
